FAERS Safety Report 15374667 (Version 1)
Quarter: 2018Q3

REPORT INFORMATION
  Report Type: Spontaneous
  Country: DE (occurrence: DE)
  Receive Date: 20180912
  Receipt Date: 20180912
  Transmission Date: 20181010
  Serious: Yes (Other)
  Sender: FDA-Public Use
  Company Number: DE-BAYER-2018-168629

PATIENT
  Age: 27 Year
  Sex: Female

DRUGS (1)
  1. JAYDESS [Suspect]
     Active Substance: LEVONORGESTREL
     Dosage: DAILY DOSE 14 ?G
     Route: 015
     Dates: start: 2017

REACTIONS (6)
  - Depressed mood [None]
  - Subcutaneous abscess [Recovered/Resolved with Sequelae]
  - Device dislocation [Not Recovered/Not Resolved]
  - Hirsutism [None]
  - Menstruation delayed [Not Recovered/Not Resolved]
  - Scar [Not Recovered/Not Resolved]

NARRATIVE: CASE EVENT DATE: 201806
